FAERS Safety Report 13984689 (Version 1)
Quarter: 2017Q3

REPORT INFORMATION
  Report Type: Spontaneous
  Country: IT (occurrence: IT)
  Receive Date: 20170918
  Receipt Date: 20170918
  Transmission Date: 20171128
  Serious: Yes (Death, Life-Threatening, Other)
  Sender: FDA-Public Use
  Company Number: IT-BAUSCH-BL-2017-027248

PATIENT
  Age: 60 Year
  Sex: Male

DRUGS (2)
  1. BETAMETHASONE. [Concomitant]
     Active Substance: BETAMETHASONE
     Indication: OPTIC ISCHAEMIC NEUROPATHY
     Dosage: DOSE (2 MG/0.5 ML)
     Route: 056
  2. DESMOPRESSIN [Suspect]
     Active Substance: DESMOPRESSIN
     Indication: OPTIC ISCHAEMIC NEUROPATHY
     Dosage: DOSE 2 MCG/0.5 ML
     Route: 056

REACTIONS (3)
  - Acute myocardial infarction [Unknown]
  - Off label use [Unknown]
  - Cardiac arrest [Fatal]
